FAERS Safety Report 5103974-9 (Version None)
Quarter: 2006Q3

REPORT INFORMATION
  Report Type: 
  Country: None (occurrence: None)
  Receive Date: 20060908
  Receipt Date: 20060828
  Transmission Date: 20061208
  Serious: Yes (Hospitalization)
  Sender: FDA-Public Use
  Company Number: 229201

PATIENT
  Age: 58 Year
  Sex: Male

DRUGS (12)
  1. RITUXAN [Suspect]
     Indication: CHRONIC LYMPHOCYTIC LEUKAEMIA TRANSFORMATION
     Dosage: 375 MG/M2, UNK; INTRAVENOUS
     Route: 042
     Dates: start: 20060406, end: 20060406
  2. OXALIPLATIN [Suspect]
     Indication: CHRONIC LYMPHOCYTIC LEUKAEMIA TRANSFORMATION
     Dosage: 25 MG/M2, UNK; INTRAVENOUS
     Route: 042
     Dates: start: 20060406, end: 20060409
  3. CYTARABINE [Suspect]
     Indication: CHRONIC LYMPHOCYTIC LEUKAEMIA TRANSFORMATION
     Dosage: 1 G/M2, UNK; INTRAVENOUS
     Route: 042
     Dates: start: 20060407, end: 20060408
  4. FLUDARABINE [Suspect]
     Indication: CHRONIC LYMPHOCYTIC LEUKAEMIA TRANSFORMATION
     Dosage: 30 MG/M2, UNK; INTRAVENOUS
     Route: 042
     Dates: start: 20060407, end: 20060408
  5. LEVOFLOXACIN [Concomitant]
  6. SULFAMETHOPRIM (SULFAMETHOXAZOLE, TRIMETHOPRIM) [Concomitant]
  7. VORICONAZOLE [Concomitant]
  8. VALACYCLOVIR [Concomitant]
  9. HUMULIN 70/30 (INSULIN HUMAN, NPH HUMAN INSULIN ISOPHANE SUSPENSION) [Concomitant]
  10. PANTOPRAZOLE SODIUM [Concomitant]
  11. DEXTROPROPOXYPHENE (PROPOXYPHENE HYDROCHLORIDE) [Concomitant]
  12. PROCHLORPERAZINE` [Concomitant]

REACTIONS (2)
  - BLINDNESS [None]
  - RETINAL HAEMORRHAGE [None]
